FAERS Safety Report 9729784 (Version 2)
Quarter: 2015Q3

REPORT INFORMATION
  Report Type: Spontaneous
  Country: US (occurrence: US)
  Receive Date: 20131204
  Receipt Date: 20150804
  Transmission Date: 20151125
  Serious: No
  Sender: FDA-Public Use
  Company Number: US-GILEAD-2009-0022481

PATIENT
  Age: 70 Year
  Sex: Male
  Weight: 108.86 kg

DRUGS (7)
  1. NORVASC [Concomitant]
     Active Substance: AMLODIPINE BESYLATE
  2. GLYBURIDE. [Concomitant]
     Active Substance: GLYBURIDE
  3. WARFARIN [Concomitant]
     Active Substance: WARFARIN
  4. BUMETANIDE. [Concomitant]
     Active Substance: BUMETANIDE
  5. LETAIRIS [Suspect]
     Active Substance: AMBRISENTAN
     Indication: PULMONARY ARTERIAL HYPERTENSION
     Route: 048
     Dates: start: 20090523
  6. POTASSIUM [Concomitant]
     Active Substance: POTASSIUM
  7. DIGITEK [Concomitant]
     Active Substance: DIGOXIN

REACTIONS (4)
  - Chest pain [Unknown]
  - Peripheral swelling [Unknown]
  - Abdominal pain upper [Unknown]
  - Unevaluable event [Unknown]
